FAERS Safety Report 8887253 (Version 5)
Quarter: 2015Q1

REPORT INFORMATION
  Report Type: Report from Study
  Country: DE (occurrence: DE)
  Receive Date: 20121101
  Receipt Date: 20150112
  Transmission Date: 20150721
  Serious: Yes (Death, Life-Threatening, Hospitalization)
  Sender: FDA-Public Use
  Company Number: DE-ROCHE-1100071

PATIENT
  Age: 51 Year
  Sex: Male
  Weight: 60.4 kg

DRUGS (45)
  1. DEXAMETHASON [Concomitant]
     Active Substance: DEXAMETHASONE
     Route: 065
     Dates: start: 20111115, end: 20111116
  2. DEXAMETHASON [Concomitant]
     Active Substance: DEXAMETHASONE
     Route: 065
     Dates: start: 201206, end: 20120621
  3. DEXAMETHASON [Concomitant]
     Active Substance: DEXAMETHASONE
     Route: 065
     Dates: start: 20120718, end: 20120731
  4. KEPPRA [Concomitant]
     Active Substance: LEVETIRACETAM
     Route: 065
     Dates: start: 20111108, end: 20111108
  5. COTRIM D.S. [Concomitant]
     Active Substance: SULFAMETHOXAZOLE\TRIMETHOPRIM
     Dosage: 320/1600/MG
     Route: 065
     Dates: start: 20111110, end: 20120102
  6. MCP [Concomitant]
     Active Substance: METOCLOPRAMIDE HYDROCHLORIDE
     Dosage: 20 DROPS
     Route: 065
     Dates: start: 20111111, end: 20111116
  7. NOVAMINSULFON [Concomitant]
     Active Substance: METAMIZOLE
     Route: 065
     Dates: start: 20120126, end: 20120126
  8. DEXAMETHASON [Concomitant]
     Active Substance: DEXAMETHASONE
     Route: 065
     Dates: start: 20111125, end: 20111207
  9. DEXAMETHASON [Concomitant]
     Active Substance: DEXAMETHASONE
     Route: 065
     Dates: start: 20120618, end: 201206
  10. KEPPRA [Concomitant]
     Active Substance: LEVETIRACETAM
     Route: 065
     Dates: start: 20111205, end: 20111205
  11. DEXAMETHASON [Concomitant]
     Active Substance: DEXAMETHASONE
     Route: 065
     Dates: start: 20120622, end: 20120703
  12. PREDNISONE. [Concomitant]
     Active Substance: PREDNISONE
     Route: 065
     Dates: start: 20120907, end: 20120910
  13. PREDNISONE. [Concomitant]
     Active Substance: PREDNISONE
     Route: 065
     Dates: start: 20120911, end: 20120913
  14. NOVAMINSULFON [Concomitant]
     Active Substance: METAMIZOLE
     Route: 065
     Dates: start: 20120127, end: 20120127
  15. BEVACIZUMAB [Suspect]
     Active Substance: BEVACIZUMAB
     Indication: GLIOBLASTOMA
     Dosage: LAST DOSE PRIOR TO SAE ON 02/AUG/2012. MOST RECENT DOSE PRIOR TO ASPERGILLOSIS: 18/JUL/2012.
     Route: 042
     Dates: end: 20120816
  16. TEMOZOLOMIDE. [Suspect]
     Active Substance: TEMOZOLOMIDE
     Indication: GLIOBLASTOMA
     Dosage: LAST DOSE PRIOR TO SAE ON 10/JUN/2012
     Route: 048
     Dates: start: 20111109
  17. DEXAMETHASON [Concomitant]
     Active Substance: DEXAMETHASONE
     Route: 065
     Dates: start: 20120704, end: 20120717
  18. KEPPRA [Concomitant]
     Active Substance: LEVETIRACETAM
     Route: 065
     Dates: start: 201109, end: 2011
  19. KEPPRA [Concomitant]
     Active Substance: LEVETIRACETAM
     Route: 065
     Dates: start: 20111109, end: 20111109
  20. KEPPRA [Concomitant]
     Active Substance: LEVETIRACETAM
     Route: 065
     Dates: start: 20111115, end: 20111118
  21. KEPPRA [Concomitant]
     Active Substance: LEVETIRACETAM
     Route: 065
     Dates: start: 20111119, end: 20111119
  22. KEPPRA [Concomitant]
     Active Substance: LEVETIRACETAM
     Route: 065
     Dates: start: 20111207, end: 2012
  23. ZOFRAN [Concomitant]
     Active Substance: ONDANSETRON HYDROCHLORIDE
     Route: 065
     Dates: start: 20120314, end: 20120318
  24. ZOFRAN [Concomitant]
     Active Substance: ONDANSETRON HYDROCHLORIDE
     Route: 065
     Dates: start: 20120509, end: 20120513
  25. DEXAMETHASON [Concomitant]
     Active Substance: DEXAMETHASONE
     Route: 065
     Dates: start: 20120817, end: 201208
  26. KEPPRA [Concomitant]
     Active Substance: LEVETIRACETAM
     Route: 065
     Dates: start: 20111110, end: 20111114
  27. COTRIM D.S. [Concomitant]
     Active Substance: SULFAMETHOXAZOLE\TRIMETHOPRIM
     Route: 065
     Dates: start: 20120810
  28. MCP [Concomitant]
     Active Substance: METOCLOPRAMIDE HYDROCHLORIDE
     Dosage: 5 ML
     Route: 065
     Dates: start: 20120119, end: 20120122
  29. MCP [Concomitant]
     Active Substance: METOCLOPRAMIDE HYDROCHLORIDE
     Route: 065
     Dates: start: 20120215, end: 20120219
  30. FENISTIL (GERMANY) [Concomitant]
     Route: 065
     Dates: start: 20120229, end: 20120305
  31. ZOFRAN [Concomitant]
     Active Substance: ONDANSETRON HYDROCHLORIDE
     Route: 065
     Dates: start: 20120606, end: 20120610
  32. PREDNISONE. [Concomitant]
     Active Substance: PREDNISONE
     Route: 065
     Dates: start: 2012, end: 20120910
  33. DEXAMETHASON [Concomitant]
     Active Substance: DEXAMETHASONE
     Route: 065
     Dates: start: 20111014, end: 20111111
  34. DEXAMETHASON [Concomitant]
     Active Substance: DEXAMETHASONE
     Route: 065
     Dates: start: 20111117, end: 20111124
  35. DEXAMETHASON [Concomitant]
     Active Substance: DEXAMETHASONE
     Route: 065
     Dates: start: 20120801, end: 20120816
  36. KEPPRA [Concomitant]
     Active Substance: LEVETIRACETAM
     Route: 065
     Dates: start: 20111121, end: 20111123
  37. KEPPRA [Concomitant]
     Active Substance: LEVETIRACETAM
     Route: 065
     Dates: start: 20111124, end: 20111204
  38. KEPPRA [Concomitant]
     Active Substance: LEVETIRACETAM
     Route: 065
     Dates: start: 20111206, end: 20111206
  39. ONDANSETRON [Concomitant]
     Active Substance: ONDANSETRON
     Route: 065
     Dates: start: 20111109, end: 20111111
  40. FENISTIL (GERMANY) [Concomitant]
     Route: 065
     Dates: start: 20120308, end: 201206
  41. FUROSEMIDE. [Concomitant]
     Active Substance: FUROSEMIDE
     Route: 065
     Dates: start: 20120704, end: 20120704
  42. DEXAMETHASON [Concomitant]
     Active Substance: DEXAMETHASONE
     Route: 065
     Dates: start: 20111112, end: 20111113
  43. PANTOZOL [Concomitant]
     Active Substance: PANTOPRAZOLE SODIUM
     Route: 065
     Dates: start: 201109, end: 2012
  44. SAB SIMPLEX [Concomitant]
     Dosage: 35 DROPS
     Route: 065
     Dates: start: 20111107, end: 20111110
  45. ZOFRAN [Concomitant]
     Active Substance: ONDANSETRON HYDROCHLORIDE
     Route: 065
     Dates: start: 20120411, end: 20120415

REACTIONS (5)
  - Aspergillus infection [Fatal]
  - Staphylococcal infection [Fatal]
  - Pneumothorax [Fatal]
  - Pulmonary fistula [Fatal]
  - Cardiovascular insufficiency [Recovered/Resolved]

NARRATIVE: CASE EVENT DATE: 20120801
